FAERS Safety Report 12795323 (Version 1)
Quarter: 2016Q3

REPORT INFORMATION
  Report Type: Spontaneous
  Country: US (occurrence: US)
  Receive Date: 20160929
  Receipt Date: 20160929
  Transmission Date: 20161109
  Serious: No
  Sender: FDA-Public Use
  Company Number: US-GLAXOSMITHKLINE-US2016139996

PATIENT
  Age: 55 Year
  Sex: Female

DRUGS (1)
  1. NICODERM CQ [Suspect]
     Active Substance: NICOTINE
     Indication: SMOKING CESSATION THERAPY
     Dosage: UNK, 24 HOURS, ONE TIME ONLY
     Dates: start: 201608, end: 201608

REACTIONS (2)
  - Application site laceration [Recovered/Resolved]
  - Application site reaction [Recovered/Resolved]
